FAERS Safety Report 8776325 (Version 1)
Quarter: 2012Q4

REPORT INFORMATION
  Report Type: 
  Country: US (occurrence: US)
  Receive Date: 20120910
  Receipt Date: 20120910
  Transmission Date: 20130627
  Serious: No
  Sender: FDA-Public Use
  Company Number: US-PFIZER INC-2012219998

PATIENT
  Age: 80 Year
  Sex: Female
  Weight: 72.6 kg

DRUGS (3)
  1. PREMARIN [Suspect]
     Indication: HORMONE REPLACEMENT THERAPY
     Dosage: UNK, two times a week
     Route: 067
     Dates: start: 2002
  2. NEXIUM [Concomitant]
     Indication: DYSPEPSIA
     Dosage: 40 mg, daily
     Dates: start: 2002
  3. LIPITOR [Concomitant]
     Indication: BLOOD CHOLESTEROL INCREASED
     Dosage: 10 mg, daily
     Dates: start: 2000

REACTIONS (2)
  - Vulvovaginal burning sensation [Recovering/Resolving]
  - Atrophic vulvovaginitis [Unknown]
